FAERS Safety Report 18790386 (Version 1)
Quarter: 2021Q1

REPORT INFORMATION
  Report Type: Spontaneous
  Country: NL (occurrence: NL)
  Receive Date: 20210126
  Receipt Date: 20210126
  Transmission Date: 20210419
  Serious: Yes (Life-Threatening)
  Sender: FDA-Public Use
  Company Number: NL-PFIZER INC-2021048993

PATIENT
  Sex: Female
  Weight: 3.5 kg

DRUGS (1)
  1. SERTRALINE [Suspect]
     Active Substance: SERTRALINE HYDROCHLORIDE
     Dosage: UNK
     Route: 064
     Dates: start: 2019

REACTIONS (2)
  - Maternal exposure during pregnancy [Unknown]
  - Newborn persistent pulmonary hypertension [Recovering/Resolving]

NARRATIVE: CASE EVENT DATE: 20210108
